FAERS Safety Report 17157028 (Version 1)
Quarter: 2019Q4

REPORT INFORMATION
  Report Type: Report from Study
  Country: US (occurrence: US)
  Receive Date: 20191216
  Receipt Date: 20191216
  Transmission Date: 20200122
  Serious: Yes (Other)
  Sender: FDA-Public Use
  Company Number: US-ROCHE-2237247

PATIENT
  Age: 53 Year
  Sex: Male

DRUGS (13)
  1. CARBOPLATIN. [Concomitant]
     Active Substance: CARBOPLATIN
     Dosage: CYCLE 1
     Route: 065
     Dates: start: 20170922
  2. PEMBROLIZUMAB. [Concomitant]
     Active Substance: PEMBROLIZUMAB
     Dosage: CYCLE 2
     Route: 065
     Dates: start: 20171013
  3. PROAIR HFA [Concomitant]
     Active Substance: ALBUTEROL SULFATE
  4. TYLENOL [Concomitant]
     Active Substance: ACETAMINOPHEN
     Route: 065
     Dates: start: 20181221
  5. BREO ELLIPTA [Concomitant]
     Active Substance: FLUTICASONE FUROATE\VILANTEROL TRIFENATATE
  6. ACETAMINOPHEN. [Concomitant]
     Active Substance: ACETAMINOPHEN
  7. PEMETREXED. [Concomitant]
     Active Substance: PEMETREXED
     Dosage: CYCLE 1
     Route: 065
     Dates: start: 20170922
  8. PROVENTIL [Concomitant]
     Active Substance: ALBUTEROL
  9. CHOLECALCIFEROL [Concomitant]
     Active Substance: CHOLECALCIFEROL
  10. PEMETREXED. [Concomitant]
     Active Substance: PEMETREXED
     Dosage: CYCLE 2
     Route: 065
     Dates: start: 20171013
  11. PEMBROLIZUMAB. [Concomitant]
     Active Substance: PEMBROLIZUMAB
     Dosage: CYCLE 1
     Route: 065
     Dates: start: 20170922
  12. CARBOPLATIN. [Concomitant]
     Active Substance: CARBOPLATIN
     Dosage: CYCLE 2
     Route: 065
     Dates: start: 20171013
  13. ENTRECTINIB [Suspect]
     Active Substance: ENTRECTINIB
     Indication: LUNG ADENOCARCINOMA STAGE IV
     Dosage: LAST DOSE PRIOR TO SAE: 20/DEC/2018
     Route: 048
     Dates: start: 20171113

REACTIONS (1)
  - Tendon rupture [Recovered/Resolved]

NARRATIVE: CASE EVENT DATE: 20181221
